FAERS Safety Report 10421061 (Version 2)
Quarter: 2014Q4

REPORT INFORMATION
  Report Type: Spontaneous
  Country: US (occurrence: None)
  Receive Date: 20140722
  Receipt Date: 20141121
  Transmission Date: 20150528
  Serious: No
  Sender: FDA-Public Use
  Company Number: 163-10004-14063872

PATIENT
  Age: 75 Year
  Sex: Female

DRUGS (10)
  1. SUMATRIPTAN (SUMATRIPTAN) [Concomitant]
     Active Substance: SUMATRIPTAN
  2. LANTUS [Concomitant]
     Active Substance: INSULIN GLARGINE
  3. BUDESONIDE (BUDESONIDE) [Concomitant]
     Active Substance: BUDESONIDE
  4. OTEZLA [Suspect]
     Active Substance: APREMILAST
     Indication: PSORIATIC ARTHROPATHY
     Dosage: 1ST DAY, PO
     Route: 048
     Dates: start: 201405, end: 201405
  5. OTEZLA [Suspect]
     Active Substance: APREMILAST
     Dosage: 1ST DAY, PO
     Route: 048
     Dates: start: 201405, end: 201405
  6. METOPROLOL (METOLPROLOL) [Concomitant]
  7. ROPINIROL (ROPINIROLE HYDROCHLORIDE) [Concomitant]
  8. OMEPRAZOLE (OMEPRAZOLE) [Concomitant]
     Active Substance: OMEPRAZOLE
  9. PROAIR (FLUTICASONE PROPIONATE) [Concomitant]
     Active Substance: FLUTICASONE PROPIONATE
  10. SIMVASTATIN (SIMVASTATIN) [Concomitant]
     Active Substance: SIMVASTATIN

REACTIONS (6)
  - Diarrhoea [None]
  - Unevaluable event [None]
  - Headache [None]
  - Nausea [None]
  - Asthenia [None]
  - Vomiting [None]

NARRATIVE: CASE EVENT DATE: 201405
